FAERS Safety Report 8915315 (Version 1)
Quarter: 2012Q4

REPORT INFORMATION
  Report Type: 
  Country: US (occurrence: US)
  Receive Date: 20121119
  Receipt Date: 20121119
  Transmission Date: 20130627
  Serious: No
  Sender: FDA-Public Use
  Company Number: US-PFIZER INC-2012288101

PATIENT
  Age: 53 Year
  Sex: Female
  Weight: 54.42 kg

DRUGS (1)
  1. ALPRAZOLAM [Suspect]
     Indication: ANXIETY
     Dosage: 1 mg, UNK

REACTIONS (2)
  - Heart rate increased [Unknown]
  - Mood altered [Unknown]
